FAERS Safety Report 16164436 (Version 1)
Quarter: 2019Q2

REPORT INFORMATION
  Report Type: Spontaneous
  Country: DK (occurrence: DK)
  Receive Date: 20190405
  Receipt Date: 20190405
  Transmission Date: 20190711
  Serious: Yes (Other)
  Sender: FDA-Public Use
  Company Number: DK-TEVA-2019-DK-1033477

PATIENT
  Age: 44 Year
  Sex: Female

DRUGS (6)
  1. TRUXAL [Concomitant]
     Active Substance: CHLORPROTHIXENE
     Indication: SEDATIVE THERAPY
     Dosage: 65 MILLIGRAM DAILY;
     Route: 048
     Dates: start: 20161101
  2. BRINTELLIX [Concomitant]
     Active Substance: VORTIOXETINE HYDROBROMIDE
     Indication: DEPRESSION
     Dosage: 10 MILLIGRAM DAILY;
     Route: 048
     Dates: start: 20180530
  3. LAMOTRIGINE. [Concomitant]
     Active Substance: LAMOTRIGINE
     Indication: MOOD SWINGS
     Dosage: 500 MILLIGRAM DAILY; STRENGTH: 100 MG + 200 MG. DOSE: 300 MG MORNING AND 200 MG EVENING
     Route: 048
     Dates: start: 20161124
  4. TOPIRAMATE. [Concomitant]
     Active Substance: TOPIRAMATE
     Indication: MIGRAINE PROPHYLAXIS
     Dosage: 125 MILLIGRAM DAILY;  DOSE: 75 MG MORNING AND 50 MG EVENING
     Route: 048
     Dates: start: 20170606
  5. SERTRALINE [Concomitant]
     Active Substance: SERTRALINE HYDROCHLORIDE
     Indication: DEPRESSION
     Dosage: 200 MILLIGRAM DAILY;
     Route: 048
     Dates: start: 20120921, end: 20180530
  6. LITAREX (LITHIUM CITRATE) [Suspect]
     Active Substance: LITHIUM CITRATE
     Indication: DEPRESSION
     Dosage: STRENGTH : 6 MMOL LI+
     Route: 048
     Dates: start: 20180123, end: 20180530

REACTIONS (2)
  - Autoimmune thyroiditis [Not Recovered/Not Resolved]
  - Blood thyroid stimulating hormone increased [Not Recovered/Not Resolved]

NARRATIVE: CASE EVENT DATE: 2018
